FAERS Safety Report 8759949 (Version 1)
Quarter: 2012Q4

REPORT INFORMATION
  Report Type: 
  Country: US (occurrence: US)
  Receive Date: 20120829
  Receipt Date: 20120829
  Transmission Date: 20130627
  Serious: Yes (Hospitalization)
  Sender: FDA-Public Use
  Company Number: US-GLAXOSMITHKLINE-B0699242A

PATIENT
  Age: 57 Year
  Sex: Female

DRUGS (2)
  1. AVANDARYL [Suspect]
     Indication: DIABETES MELLITUS
     Route: 048
     Dates: start: 200704, end: 200709
  2. AVANDAMET [Suspect]
     Indication: DIABETES MELLITUS
     Route: 048
     Dates: start: 200312, end: 200412

REACTIONS (2)
  - Cardiac failure congestive [Not Recovered/Not Resolved]
  - Palpitations [Unknown]
